FAERS Safety Report 7979309-0 (Version None)
Quarter: 2011Q4

REPORT INFORMATION
  Report Type: 
  Country: None (occurrence: None)
  Receive Date: 20111201
  Receipt Date: 20111118
  Transmission Date: 20120403
  Serious: Yes (Death, Hospitalization, Other)
  Sender: FDA-Public Use
  Company Number: 2011MA016633

PATIENT
  Age: 92 Year
  Sex: Female
  Weight: 56.6996 kg

DRUGS (13)
  1. COUMADIN [Concomitant]
  2. PHENERGAN [Concomitant]
  3. TYLENOL-500 [Concomitant]
  4. DYNACIRC [Concomitant]
  5. ATACAND [Concomitant]
  6. ENALAPRIL MALEATE [Concomitant]
  7. IRON [Concomitant]
  8. LASIX [Concomitant]
  9. DIGOXIN [Suspect]
     Indication: ATRIAL FIBRILLATION
     Dosage: 0.125 MG;QD;PO
     Route: 048
     Dates: start: 20010128, end: 20080101
  10. BUMETANIDE [Concomitant]
  11. MICRO-K [Concomitant]
  12. PROMETHAZINE [Concomitant]
  13. VASOTEC [Concomitant]

REACTIONS (27)
  - GAIT DISTURBANCE [None]
  - VOMITING [None]
  - CARDIOMEGALY [None]
  - LUNG CONSOLIDATION [None]
  - HYPERTENSION [None]
  - ABDOMINAL DISTENSION [None]
  - PULMONARY CONGESTION [None]
  - CARDIAC FAILURE CONGESTIVE [None]
  - HAEMATOCRIT DECREASED [None]
  - CARDIOACTIVE DRUG LEVEL INCREASED [None]
  - HYPOVOLAEMIA [None]
  - UNEVALUABLE EVENT [None]
  - TROPONIN INCREASED [None]
  - BREAST PAIN [None]
  - TREATMENT NONCOMPLIANCE [None]
  - ECONOMIC PROBLEM [None]
  - TOXICITY TO VARIOUS AGENTS [None]
  - RENAL FAILURE [None]
  - DIARRHOEA [None]
  - PLEURAL EFFUSION [None]
  - WHEEZING [None]
  - PNEUMONIA [None]
  - MULTIPLE INJURIES [None]
  - CARDIO-RESPIRATORY ARREST [None]
  - DEHYDRATION [None]
  - ATRIAL FIBRILLATION [None]
  - DRUG INTOLERANCE [None]
